FAERS Safety Report 7626476-4 (Version None)
Quarter: 2011Q3

REPORT INFORMATION
  Report Type: 
  Country: None (occurrence: None)
  Receive Date: 20110721
  Receipt Date: 20110411
  Transmission Date: 20111222
  Serious: No
  Sender: FDA-Public Use
  Company Number: US-NOVEN-11US002236

PATIENT
  Sex: Female

DRUGS (5)
  1. ASPIRIN [Concomitant]
     Indication: PRODUCT USED FOR UNKNOWN INDICATION
     Dosage: 1 TABLET QD
     Route: 048
  2. SEROQUEL [Concomitant]
     Indication: INSOMNIA
     Route: 048
  3. GABAPENTIN [Concomitant]
     Indication: NEURALGIA
     Route: 048
  4. FENTANYL [Suspect]
     Indication: PAIN
     Dosage: 50 UG, Q72H
     Route: 062
  5. OXYCODONE [Concomitant]
     Indication: PAIN
     Route: 048

REACTIONS (4)
  - PRODUCT QUALITY ISSUE [None]
  - INADEQUATE ANALGESIA [None]
  - APPLICATION SITE ERYTHEMA [None]
  - DRUG ADMINISTRATION ERROR [None]
